FAERS Safety Report 6905827-X (Version None)
Quarter: 2010Q3

REPORT INFORMATION
  Report Type: 
  Country: None (occurrence: None)
  Receive Date: 20100804
  Receipt Date: 20100726
  Transmission Date: 20110219
  Serious: Yes (Other)
  Sender: FDA-Public Use
  Company Number: DE-ROCHE-707667

PATIENT
  Sex: Female
  Weight: 140 kg

DRUGS (1)
  1. ROACTEMRA [Suspect]
     Indication: RHEUMATOID ARTHRITIS
     Dosage: TOTAL MONTHLY DOSE 1200 MG
     Route: 042
     Dates: start: 20090301, end: 20100423

REACTIONS (1)
  - CONSTIPATION [None]
